FAERS Safety Report 7293755-2 (Version None)
Quarter: 2011Q1

REPORT INFORMATION
  Report Type: 
  Country: None (occurrence: None)
  Receive Date: 20110203
  Receipt Date: 20110121
  Transmission Date: 20110831
  Serious: Yes (Life-Threatening, Hospitalization)
  Sender: FDA-Public Use
  Company Number: 025972

PATIENT
  Age: 33 Year
  Sex: Female
  Weight: 64 kg

DRUGS (4)
  1. DIAZEPAM [Concomitant]
  2. CELEXA [Concomitant]
  3. KLONOPIN [Concomitant]
  4. LACOSAMIDE [Suspect]
     Indication: EPILEPSY
     Dosage: (100 MG ORAL)
     Route: 048
     Dates: start: 20110113, end: 20110121

REACTIONS (1)
  - HYPERSENSITIVITY [None]
